FAERS Safety Report 24784745 (Version 1)
Quarter: 2024Q4

REPORT INFORMATION
  Report Type: Spontaneous
  Country: US (occurrence: US)
  Receive Date: 20241228
  Receipt Date: 20241228
  Transmission Date: 20250115
  Serious: Yes (Death, Hospitalization)
  Sender: BAUSCH AND LOMB
  Company Number: US-BAUSCH-BL-2024-018603

PATIENT
  Age: 20 Year
  Sex: Female

DRUGS (6)
  1. VENLAFAXINE [Suspect]
     Active Substance: VENLAFAXINE HYDROCHLORIDE
     Indication: Product used for unknown indication
     Dosage: INGESTION
     Route: 048
  2. SODIUM NITRITE [Suspect]
     Active Substance: SODIUM NITRITE
     Indication: Product used for unknown indication
     Dosage: INGESTION
     Route: 048
  3. BUPROPION [Suspect]
     Active Substance: BUPROPION
     Indication: Product used for unknown indication
     Dosage: INGESTION
     Route: 048
  4. FLUOXETINE [Suspect]
     Active Substance: FLUOXETINE HYDROCHLORIDE
     Indication: Product used for unknown indication
     Dosage: INGESTION
     Route: 048
  5. ARIPIPRAZOLE [Suspect]
     Active Substance: ARIPIPRAZOLE
     Indication: Product used for unknown indication
     Dosage: INGESTION
     Route: 048
  6. HYDROXYZINE [Suspect]
     Active Substance: HYDROXYZINE HYDROCHLORIDE
     Indication: Product used for unknown indication
     Dosage: INGESTION
     Route: 048

REACTIONS (3)
  - Suspected suicide [Fatal]
  - Cardiac arrest [Unknown]
  - Respiratory arrest [Unknown]
